FAERS Safety Report 7430062-9 (Version None)
Quarter: 2011Q2

REPORT INFORMATION
  Report Type: 
  Country: None (occurrence: None)
  Receive Date: 20110421
  Receipt Date: 20100823
  Transmission Date: 20111010
  Serious: No
  Sender: FDA-Public Use
  Company Number: US-ASTRAZENECA-2010SE39928

PATIENT
  Age: 14639 Day
  Sex: Female
  Weight: 83.9 kg

DRUGS (5)
  1. SEROQUEL [Suspect]
     Indication: BIPOLAR DISORDER
     Route: 048
     Dates: start: 20100401
  2. TOPROL-XL [Suspect]
     Indication: HYPERTENSION
     Route: 048
     Dates: start: 20090101
  3. TRAZODONE HCL [Suspect]
     Dates: start: 20100807
  4. TRAZODONE HCL [Suspect]
     Dates: start: 20100101, end: 20100804
  5. SEROQUEL [Suspect]
     Indication: DEPRESSION
     Route: 048
     Dates: start: 20100401

REACTIONS (5)
  - TREMOR [None]
  - LOGORRHOEA [None]
  - NERVOUSNESS [None]
  - WITHDRAWAL SYNDROME [None]
  - DRUG DOSE OMISSION [None]
